FAERS Safety Report 4588184-6 (Version None)
Quarter: 2005Q1

REPORT INFORMATION
  Report Type: 
  Country: None (occurrence: None)
  Receive Date: 20050221
  Receipt Date: 20050109
  Transmission Date: 20050727
  Serious: Yes (Hospitalization)
  Sender: FDA-Public Use
  Company Number: IE-GLAXOSMITHKLINE-B0364441A

PATIENT
  Age: 70 Year
  Sex: Male

DRUGS (9)
  1. AVANDIA [Suspect]
     Route: 065
     Dates: start: 20030817, end: 20041231
  2. AMARYL [Concomitant]
     Dosage: 6MG PER DAY
  3. GLUCOPHAGE [Concomitant]
     Dosage: 850MG THREE TIMES PER DAY
  4. ZOCOR [Concomitant]
     Indication: BLOOD CHOLESTEROL INCREASED
     Dosage: 10MG PER DAY
  5. AULIN (NIMESULIDE) [Concomitant]
     Indication: RHEUMATOID ARTHRITIS
     Dosage: 100MG TWICE PER DAY
     Dates: start: 20041215, end: 20041231
  6. METHOTREXATE [Concomitant]
     Indication: RHEUMATOID ARTHRITIS
     Dosage: 10MG WEEKLY
     Dates: start: 20041101
  7. ASPIRIN [Concomitant]
     Dosage: 75MG PER DAY
  8. ATENOLOL [Concomitant]
     Dosage: 25MG PER DAY
  9. BURINEX [Concomitant]
     Dosage: 1MG PER DAY

REACTIONS (8)
  - BLOOD CHOLESTEROL INCREASED [None]
  - BLOOD CREATININE INCREASED [None]
  - BLOOD SODIUM INCREASED [None]
  - BLOOD TRIGLYCERIDES INCREASED [None]
  - BLOOD UREA INCREASED [None]
  - CARDIAC FAILURE CONGESTIVE [None]
  - DYSPNOEA EXACERBATED [None]
  - OEDEMA PERIPHERAL [None]
